FAERS Safety Report 7379547-4 (Version None)
Quarter: 2011Q1

REPORT INFORMATION
  Report Type: 
  Country: None (occurrence: None)
  Receive Date: 20110329
  Receipt Date: 20110317
  Transmission Date: 20110831
  Serious: Yes (Hospitalization, Other)
  Sender: FDA-Public Use
  Company Number: US-BIOGENIDEC-2011BI010311

PATIENT
  Age: 48 Year
  Sex: Male

DRUGS (1)
  1. TYSABRI [Suspect]
     Indication: MULTIPLE SCLEROSIS
     Route: 042
     Dates: start: 20091218, end: 20110202

REACTIONS (4)
  - BONE PAIN [None]
  - LOSS OF CONSCIOUSNESS [None]
  - VIRAL INFECTION [None]
  - RESPIRATORY ARREST [None]
